FAERS Safety Report 11914549 (Version 1)
Quarter: 2016Q1

REPORT INFORMATION
  Report Type: Report from Study
  Country: US (occurrence: US)
  Receive Date: 20160113
  Receipt Date: 20160113
  Transmission Date: 20160526
  Serious: Yes (Other)
  Sender: FDA-Public Use
  Company Number: US-ACTELION-A-US2015-129188

PATIENT
  Age: 52 Year
  Sex: Male

DRUGS (3)
  1. ADCIRCA [Concomitant]
     Active Substance: TADALAFIL
  2. TRACLEER [Suspect]
     Active Substance: BOSENTAN
     Indication: PULMONARY ARTERIAL HYPERTENSION
     Dosage: UNK
     Route: 048
  3. TYVASO [Suspect]
     Active Substance: TREPROSTINIL
     Indication: PRODUCT USED FOR UNKNOWN INDICATION
     Dosage: UNK
     Route: 065
     Dates: end: 20151225

REACTIONS (11)
  - Diarrhoea [Unknown]
  - Cough [Unknown]
  - Respiratory arrest [Unknown]
  - Dizziness [Unknown]
  - Muscle spasms [Unknown]
  - Dysgeusia [Unknown]
  - Headache [Unknown]
  - Hypotension [Unknown]
  - Loss of consciousness [Unknown]
  - Bronchial disorder [Unknown]
  - Oropharyngeal pain [Unknown]
